FAERS Safety Report 9523284 (Version 1)
Quarter: 2013Q3

REPORT INFORMATION
  Report Type: Spontaneous
  Country: FR (occurrence: FR)
  Receive Date: 20130913
  Receipt Date: 20130913
  Transmission Date: 20140515
  Serious: Yes (Hospitalization)
  Sender: FDA-Public Use
  Company Number: FR-VERTEX PHARMACEUTICALS INC-2013-009552

PATIENT
  Age: 58 Year
  Sex: Male
  Weight: 60 kg

DRUGS (5)
  1. INCIVO [Suspect]
     Indication: HEPATITIS C
     Dosage: 1125 MG, BID
     Route: 048
     Dates: start: 20130517, end: 20130730
  2. PEGASYS [Suspect]
     Indication: HEPATITIS C
     Dosage: DOSAGE FORM: UNSPECIFIED
     Route: 058
     Dates: start: 20130517, end: 20130726
  3. RIBAVIRIN [Suspect]
     Indication: HEPATITIS C
     Dosage: DOSAGE FORM: UNSPECIFIED
     Route: 048
     Dates: start: 20130517
  4. RIBAVIRIN [Suspect]
     Dosage: UNK, QD
     Route: 048
     Dates: end: 20130801
  5. NEORECORMON [Concomitant]
     Dosage: DOSAGE FORM: UNSPECIFIED
     Route: 058
     Dates: start: 20130627

REACTIONS (7)
  - Weight decreased [Unknown]
  - Renal failure acute [Recovered/Resolved]
  - Toxic skin eruption [Recovered/Resolved]
  - Lymphopenia [Unknown]
  - Rash maculo-papular [Recovered/Resolved]
  - Anaemia [Unknown]
  - Hypokalaemia [Unknown]
